FAERS Safety Report 6432247-7 (Version None)
Quarter: 2009Q4

REPORT INFORMATION
  Report Type: 
  Country: None (occurrence: None)
  Receive Date: 20091105
  Receipt Date: 20091028
  Transmission Date: 20100525
  Serious: Yes (Death)
  Sender: FDA-Public Use
  Company Number: CLOF-1000751

PATIENT
  Sex: Female

DRUGS (1)
  1. EVOLTRA          (CLOFARABINE) [Suspect]
     Indication: ACUTE MYELOID LEUKAEMIA

REACTIONS (1)
  - DEATH [None]
